FAERS Safety Report 23437612 (Version 1)
Quarter: 2024Q1

REPORT INFORMATION
  Report Type: Spontaneous
  Country: US (occurrence: None)
  Receive Date: 20240123
  Receipt Date: 20240123
  Transmission Date: 20240409
  Serious: Yes (Death)
  Sender: FDA-Public Use
  Company Number: None

PATIENT
  Age: 52 Year
  Sex: Male
  Weight: 113.7 kg

DRUGS (1)
  1. DOXERCALCIFEROL [Suspect]
     Active Substance: DOXERCALCIFEROL
     Dosage: 4.0UG  3 X WEEK INTRAVENOUS BOLUUS
     Route: 040
     Dates: start: 20240117, end: 20240117

REACTIONS (4)
  - Haemodialysis [None]
  - Nausea [None]
  - Vomiting [None]
  - Cardio-respiratory arrest [None]

NARRATIVE: CASE EVENT DATE: 20240117
